FAERS Safety Report 18844768 (Version 1)
Quarter: 2021Q1

REPORT INFORMATION
  Report Type: Report from Study
  Country: US (occurrence: US)
  Receive Date: 20210203
  Receipt Date: 20210203
  Transmission Date: 20210419
  Serious: No
  Sender: FDA-Public Use
  Company Number: US-EXELIXIS-CABO-20027749

PATIENT
  Age: 63 Year
  Sex: Male

DRUGS (10)
  1. TRAMADOL HCL [Concomitant]
     Active Substance: TRAMADOL HYDROCHLORIDE
     Dosage: UNK
  2. LEVOTHYROXINE SODIUM. [Concomitant]
     Active Substance: LEVOTHYROXINE SODIUM
     Dosage: UNK
  3. BUTALBITAL, ACETAMINOPHEN, AND CAFFEINE [Concomitant]
     Active Substance: ACETAMINOPHEN\BUTALBITAL\CAFFEINE
     Dosage: UNK
  4. LORAZEPAM. [Concomitant]
     Active Substance: LORAZEPAM
     Dosage: UNK
  5. CEPHALEXIN. [Concomitant]
     Active Substance: CEPHALEXIN
     Dosage: UNK
  6. DIPHENOXYLATE/ATROPINE [Concomitant]
     Active Substance: ATROPINE\DIPHENOXYLATE
     Dosage: UNK
  7. CABOMETYX [Suspect]
     Active Substance: CABOZANTINIB S-MALATE
     Indication: RENAL CANCER
     Dosage: 60 MG, QD
     Route: 048
     Dates: start: 20200130
  8. SMZ?TMP DS [Concomitant]
     Active Substance: SULFAMETHOXAZOLE\TRIMETHOPRIM
     Dosage: UNK
  9. AMOXICILLIN + CLAV. POTASSIUM [Concomitant]
     Active Substance: AMOXICILLIN\CLAVULANATE POTASSIUM
     Dosage: UNK
  10. MUPIROCIN. [Concomitant]
     Active Substance: MUPIROCIN
     Dosage: UNK

REACTIONS (5)
  - Taste disorder [Unknown]
  - Weight decreased [Not Recovered/Not Resolved]
  - Infection [Unknown]
  - Stomatitis [Unknown]
  - Diarrhoea [Not Recovered/Not Resolved]

NARRATIVE: CASE EVENT DATE: 20200309
